FAERS Safety Report 5761713-2 (Version None)
Quarter: 2008Q2

REPORT INFORMATION
  Report Type: 
  Country: None (occurrence: None)
  Receive Date: 20080606
  Receipt Date: 20080526
  Transmission Date: 20081010
  Serious: Yes (Hospitalization)
  Sender: FDA-Public Use
  Company Number: PT-PFIZER INC-2008043379

PATIENT
  Age: 49 Year
  Sex: Male

DRUGS (4)
  1. SUTENT [Suspect]
     Indication: METASTATIC RENAL CELL CARCINOMA
     Route: 048
     Dates: start: 20070101, end: 20080429
  2. MST [Concomitant]
  3. WARFARIN SODIUM [Concomitant]
  4. LAXATIVES [Concomitant]

REACTIONS (5)
  - CONVULSION [None]
  - ENCEPHALOPATHY [None]
  - HEADACHE [None]
  - NEUROLOGICAL SYMPTOM [None]
  - PULMONARY EMBOLISM [None]
